FAERS Safety Report 9726230 (Version 1)
Quarter: 2013Q4

REPORT INFORMATION
  Report Type: Spontaneous
  Country: US (occurrence: None)
  Receive Date: 20131202
  Receipt Date: 20131202
  Transmission Date: 20140711
  Serious: Yes (Hospitalization)
  Sender: FDA-Public Use
  Company Number: None

PATIENT
  Age: 51 Year
  Sex: Female
  Weight: 78.4 kg

DRUGS (2)
  1. CYTARABINE [Suspect]
     Dates: end: 20131106
  2. DAUNORUBICIN [Suspect]
     Dates: end: 20131101

REACTIONS (6)
  - Pneumonia [None]
  - Blood pressure diastolic decreased [None]
  - Heart rate increased [None]
  - Aspergillus test positive [None]
  - Oxygen saturation decreased [None]
  - Post procedural complication [None]
